FAERS Safety Report 10290262 (Version 2)
Quarter: 2014Q3

REPORT INFORMATION
  Report Type: Report from Study
  Country: US (occurrence: US)
  Receive Date: 20140710
  Receipt Date: 20140710
  Transmission Date: 20150326
  Serious: Yes (Hospitalization, Other)
  Sender: FDA-Public Use
  Company Number: US-ALEXION PHARMACEUTICALS INC.-A201402690

PATIENT

DRUGS (2)
  1. SOLIRIS [Suspect]
     Active Substance: ECULIZUMAB
     Indication: HAEMOLYTIC URAEMIC SYNDROME
     Dosage: UNK
     Route: 042
  2. BELATACEPT [Concomitant]
     Active Substance: BELATACEPT
     Indication: PRODUCT USED FOR UNKNOWN INDICATION
     Dosage: UNK
     Route: 065

REACTIONS (7)
  - Escherichia infection [Unknown]
  - Urinary tract infection [Unknown]
  - Anaemia [Unknown]
  - Malignant hypertension [Unknown]
  - Posterior reversible encephalopathy syndrome [Unknown]
  - Clostridium difficile infection [Unknown]
  - Transplant rejection [Unknown]

NARRATIVE: CASE EVENT DATE: 20140213
